FAERS Safety Report 13490885 (Version 1)
Quarter: 2017Q2

REPORT INFORMATION
  Report Type: Spontaneous
  Country: IE (occurrence: IE)
  Receive Date: 20170427
  Receipt Date: 20170427
  Transmission Date: 20170830
  Serious: Yes (Disabling)
  Sender: FDA-Public Use
  Company Number: IE-EXELIXIS-CABO-17008782

PATIENT
  Age: 65 Year
  Sex: Male
  Weight: 78.6 kg

DRUGS (2)
  1. CABOMETYX [Suspect]
     Active Substance: CABOZANTINIB S-MALATE
     Indication: RENAL CELL CARCINOMA
     Dosage: 60 MG, QD
     Route: 048
     Dates: start: 20170208, end: 2017
  2. CABOMETYX [Suspect]
     Active Substance: CABOZANTINIB S-MALATE
     Dosage: 40 MG, QD
     Route: 048
     Dates: start: 2017

REACTIONS (6)
  - Pain in extremity [Recovered/Resolved]
  - Mucosal inflammation [Recovered/Resolved]
  - Burning sensation [Recovered/Resolved]
  - Skin discolouration [Unknown]
  - Feeding disorder [Recovered/Resolved]
  - Gait disturbance [Recovered/Resolved]

NARRATIVE: CASE EVENT DATE: 20170316
